FAERS Safety Report 20589291 (Version 1)
Quarter: 2022Q1

REPORT INFORMATION
  Report Type: Spontaneous
  Country: US (occurrence: US)
  Receive Date: 20220314
  Receipt Date: 20220314
  Transmission Date: 20220423
  Serious: No
  Sender: FDA-Public Use
  Company Number: US-ORGANON-O2203USA000559

PATIENT
  Age: 37 Year
  Sex: Female
  Weight: 80.272 kg

DRUGS (1)
  1. NEXPLANON [Suspect]
     Active Substance: ETONOGESTREL
     Indication: Contraception
     Dosage: 68 MILLIGRAM
     Route: 059
     Dates: start: 20181004, end: 20220301

REACTIONS (3)
  - Pain in extremity [Recovered/Resolved]
  - Device breakage [Recovered/Resolved]
  - Incorrect product administration duration [Unknown]

NARRATIVE: CASE EVENT DATE: 20211004
